FAERS Safety Report 17854268 (Version 4)
Quarter: 2024Q4

REPORT INFORMATION
  Report Type: Spontaneous
  Country: ES (occurrence: ES)
  Receive Date: 20200603
  Receipt Date: 20241121
  Transmission Date: 20250115
  Serious: Yes (Death, Life-Threatening, Hospitalization, Other)
  Sender: ACCORD
  Company Number: None

PATIENT
  Age: 65 Year
  Sex: Female

DRUGS (11)
  1. BUSULFAN [Suspect]
     Active Substance: BUSULFAN
     Indication: Bone marrow conditioning regimen
     Route: 065
  2. ACYCLOVIR [Suspect]
     Active Substance: ACYCLOVIR
     Indication: Infection prophylaxis
     Dosage: 800 MG, BID
     Route: 065
  3. FLUDARABINE [Suspect]
     Active Substance: FLUDARABINE PHOSPHATE
     Indication: Bone marrow conditioning regimen
     Route: 065
  4. MYCOPHENOLATE MOFETIL [Suspect]
     Active Substance: MYCOPHENOLATE MOFETIL
     Indication: Immunosuppression
     Route: 065
  5. LEVOFLOXACIN [Suspect]
     Active Substance: LEVOFLOXACIN
     Indication: Infection prophylaxis
     Dosage: 500 MG/DL, QD
     Route: 065
  6. TACROLIMUS [Suspect]
     Active Substance: TACROLIMUS
     Indication: Immunosuppression
     Route: 065
  7. FLUCONAZOLE [Suspect]
     Active Substance: FLUCONAZOLE
     Indication: Infection prophylaxis
     Dosage: 400 MG/DL, QD
     Route: 065
  8. CYCLOPHOSPHAMIDE [Suspect]
     Active Substance: CYCLOPHOSPHAMIDE
     Indication: Prophylaxis against graft versus host disease
     Route: 065
  9. GENOXAL [Suspect]
     Active Substance: CYCLOPHOSPHAMIDE
     Indication: Prophylaxis against graft versus host disease
  10. MYCOPHENOLATE MOFETIL [Suspect]
     Active Substance: MYCOPHENOLATE MOFETIL
     Indication: Stem cell transplant
     Route: 065
  11. TACROLIMUS [Suspect]
     Active Substance: TACROLIMUS
     Indication: Stem cell transplant
     Route: 065

REACTIONS (29)
  - Mucosal inflammation [Fatal]
  - Disseminated mucormycosis [Fatal]
  - Respiratory failure [Fatal]
  - Haemorrhage [Fatal]
  - Thrombocytopenia [Fatal]
  - Gastrointestinal necrosis [Fatal]
  - Splenic vein thrombosis [Fatal]
  - Pancreatitis necrotising [Fatal]
  - Fungal infection [Fatal]
  - Cerebral artery thrombosis [Fatal]
  - Cardio-respiratory arrest [Fatal]
  - Thrombosis [Fatal]
  - Septic embolus [Fatal]
  - Systemic mycosis [Fatal]
  - Haemodynamic instability [Fatal]
  - Pulmonary infarction [Fatal]
  - Epistaxis [Fatal]
  - Pulmonary embolism [Fatal]
  - Ischaemic stroke [Fatal]
  - Arteritis infective [Fatal]
  - Cerebral infarction [Fatal]
  - Fat necrosis [Fatal]
  - Neutropenia [Fatal]
  - Hypoxic-ischaemic encephalopathy [Fatal]
  - Gastritis fungal [Fatal]
  - Acquired macroglossia [Fatal]
  - Haematoma [Fatal]
  - Respiratory disorder [Fatal]
  - Pyrexia [Unknown]
